FAERS Safety Report 5318787-2 (Version None)
Quarter: 2007Q2

REPORT INFORMATION
  Report Type: 
  Country: None (occurrence: None)
  Receive Date: 20070504
  Receipt Date: 20070504
  Transmission Date: 20071010
  Serious: Yes (Other)
  Sender: FDA-Public Use
  Company Number: None

PATIENT
  Age: 63 Year
  Sex: Female
  Weight: 80.2867 kg

DRUGS (1)
  1. ACTONEL [Suspect]
     Indication: OSTEOPOROSIS PROPHYLAXIS
     Dosage: ONE WEEKLY PO
     Route: 048
     Dates: start: 20020201, end: 20060801

REACTIONS (6)
  - DRUG INEFFECTIVE [None]
  - INFECTION [None]
  - PAIN IN JAW [None]
  - PHARMACEUTICAL PRODUCT COMPLAINT [None]
  - SWELLING [None]
  - TOOTHACHE [None]
